FAERS Safety Report 5034420-1 (Version None)
Quarter: 2006Q2

REPORT INFORMATION
  Report Type: 
  Country: None (occurrence: None)
  Receive Date: 20060620
  Receipt Date: 20060612
  Transmission Date: 20061013
  Serious: Yes (Hospitalization)
  Sender: FDA-Public Use
  Company Number: 200610657BVD

PATIENT
  Sex: Female
  Weight: 50 kg

DRUGS (6)
  1. SORAFENIB [Suspect]
     Indication: RENAL CELL CARCINOMA STAGE UNSPECIFIED
     Dosage: 400 MG, BID, ORAL
     Route: 048
     Dates: start: 20060301, end: 20060318
  2. METOPROLOL TARTRATE [Concomitant]
  3. ACTRAPID [Concomitant]
  4. NOVALGIN [Concomitant]
  5. DURAGESIC-100 [Concomitant]
  6. DELIX [Concomitant]

REACTIONS (7)
  - ANGINA UNSTABLE [None]
  - AORTIC VALVE STENOSIS [None]
  - CARDIAC DISORDER [None]
  - CORONARY ARTERY DISEASE [None]
  - DYSKINESIA [None]
  - METASTASES TO LUNG [None]
  - PALMAR-PLANTAR ERYTHRODYSAESTHESIA SYNDROME [None]
